FAERS Safety Report 4450317-X (Version None)
Quarter: 2004Q3

REPORT INFORMATION
  Report Type: 
  Country: None (occurrence: None)
  Receive Date: 20040914
  Receipt Date: 20040901
  Transmission Date: 20050211
  Serious: Yes (Disabling)
  Sender: FDA-Public Use
  Company Number: 239142

PATIENT
  Age: 71 Year
  Sex: Female
  Weight: 73.4 kg

DRUGS (2)
  1. NOVOMIX 30 FLEXPEN (NOVOMIX FLEXPEN)(INSULIN ASPART) SUSPENSION FOR IN [Suspect]
     Indication: DIABETES MELLITUS NON-INSULIN-DEPENDENT
     Dosage: 46 U, QD, SUBCUTANEOUS
     Route: 058
     Dates: start: 20040609, end: 20040818
  2. TOFRANIL [Concomitant]

REACTIONS (4)
  - HYPERGLYCAEMIA [None]
  - METABOLIC ACIDOSIS [None]
  - SEPSIS [None]
  - SEPTIC SHOCK [None]
